FAERS Safety Report 10075969 (Version 1)
Quarter: 2014Q2

REPORT INFORMATION
  Report Type: Spontaneous
  Country: JP (occurrence: JP)
  Receive Date: 20140414
  Receipt Date: 20140414
  Transmission Date: 20141212
  Serious: Yes (Other)
  Sender: FDA-Public Use
  Company Number: JP-BAYER-2014-051139

PATIENT
  Age: 61 Year
  Sex: Female

DRUGS (1)
  1. CIPROXAN [Suspect]
     Dosage: UNK
     Route: 048
     Dates: start: 201301, end: 201301

REACTIONS (2)
  - Oculomucocutaneous syndrome [None]
  - Renal failure acute [None]
